FAERS Safety Report 5774335-4 (Version None)
Quarter: 2008Q2

REPORT INFORMATION
  Report Type: 
  Country: None (occurrence: None)
  Receive Date: 20080616
  Receipt Date: 20071016
  Transmission Date: 20081010
  Serious: Yes (Hospitalization)
  Sender: FDA-Public Use
  Company Number: GB-BAXTER-2007BH008402

PATIENT
  Age: 19 Year
  Sex: Female

DRUGS (5)
  1. GENTAMICIN [Suspect]
     Indication: PSEUDOMONAS INFECTION
     Route: 065
     Dates: start: 20000601
  2. AZITHROMYCIN [Suspect]
     Indication: PSEUDOMONAS INFECTION
     Dosage: DOSE UNIT:UNKNOWN
     Route: 065
  3. MEROPENEM [Suspect]
     Indication: PSEUDOMONAS INFECTION
     Route: 065
  4. TOBRAMYCIN [Suspect]
     Indication: PSEUDOMONAS INFECTION
     Route: 065
  5. TOBRAMYCIN [Suspect]
     Route: 065

REACTIONS (5)
  - BALANCE DISORDER [None]
  - DEAFNESS NEUROSENSORY [None]
  - DIZZINESS [None]
  - RENAL FAILURE ACUTE [None]
  - TINNITUS [None]
